FAERS Safety Report 16321103 (Version 1)
Quarter: 2019Q2

REPORT INFORMATION
  Report Type: Other
  Country: FR (occurrence: FR)
  Receive Date: 20190516
  Receipt Date: 20190516
  Transmission Date: 20190711
  Serious: Yes (Other)
  Sender: FDA-Public Use
  Company Number: FR-DENTSPLY-2019SCDP000304

PATIENT
  Age: 36 Year
  Sex: Female

DRUGS (5)
  1. PROPOFOL. [Suspect]
     Active Substance: PROPOFOL
     Indication: ANAESTHESIA
     Dosage: 8 MG
     Route: 042
     Dates: start: 20190419, end: 20190419
  2. XYLOCAINE WITH ADRENALINE (EPINEPHRINE) [Suspect]
     Active Substance: EPINEPHRINE BITARTRATE\LIDOCAINE HYDROCHLORIDE
     Indication: ANAESTHESIA
     Dosage: 70 MG
     Route: 042
     Dates: start: 20190419, end: 20190419
  3. VANCOMYCINE SANDOZ [Suspect]
     Active Substance: VANCOMYCIN
     Indication: ANAESTHESIA
     Dosage: UNK
     Route: 042
     Dates: start: 20190419, end: 20190419
  4. ATRACURIUM HOSPIRA [Suspect]
     Active Substance: ATRACURIUM BESYLATE
     Indication: ANAESTHESIA
     Dosage: 40 MG
     Route: 042
     Dates: start: 20190419, end: 20190419
  5. REMIFENTANIL MYLAN [Suspect]
     Active Substance: REMIFENTANIL
     Indication: ANAESTHESIA
     Dosage: 8 MG
     Route: 042
     Dates: start: 20190419, end: 20190419

REACTIONS (2)
  - Tachycardia [Recovered/Resolved]
  - Hypotension [Recovered/Resolved]

NARRATIVE: CASE EVENT DATE: 20190419
